FAERS Safety Report 9215126 (Version 1)
Quarter: 2013Q2

REPORT INFORMATION
  Report Type: Spontaneous
  Country: BR (occurrence: BR)
  Receive Date: 20130405
  Receipt Date: 20130405
  Transmission Date: 20140414
  Serious: Yes (Hospitalization)
  Sender: FDA-Public Use
  Company Number: BR-ELI_LILLY_AND_COMPANY-BR201303009483

PATIENT
  Sex: 0

DRUGS (3)
  1. HUMALOG LISPRO [Suspect]
     Indication: DIABETES MELLITUS
     Dosage: UNK UNK, TID
     Route: 065
  2. HUMULIN NPH [Suspect]
     Indication: DIABETES MELLITUS
     Dosage: 24 IU, UNK
     Route: 065
  3. HUMULIN NPH [Suspect]
     Dosage: 74 IU, EACH EVENING
     Route: 065

REACTIONS (1)
  - Cerebrovascular accident [Unknown]
